FAERS Safety Report 8615246-6 (Version None)
Quarter: 2012Q3

REPORT INFORMATION
  Report Type: 
  Country: None (occurrence: None)
  Receive Date: 20120823
  Receipt Date: 20120820
  Transmission Date: 20120928
  Serious: No
  Sender: FDA-Public Use
  Company Number: US-PFIZER INC-2012204465

PATIENT
  Age: 77 Year
  Sex: Female
  Weight: 71.2 kg

DRUGS (6)
  1. ADVIL [Suspect]
     Indication: PAIN
     Dosage: 200 MG, UNK
  2. LISINOPRIL [Concomitant]
     Indication: HYPERTENSION
     Dosage: 20 MG,DAILY
  3. TYLENOL [Suspect]
     Indication: PAIN
     Dosage: UNK
  4. CELEBREX [Suspect]
     Indication: NECK PAIN
  5. CELEBREX [Suspect]
     Indication: ARTHRITIS
     Dosage: 200 MG, DAILY
  6. CELEBREX [Suspect]
     Indication: HEADACHE
     Dosage: 200 MG, ALTERNATE DAY

REACTIONS (6)
  - DRUG INEFFECTIVE [None]
  - ACTIVITIES OF DAILY LIVING IMPAIRED [None]
  - NAUSEA [None]
  - HEARING IMPAIRED [None]
  - MEMORY IMPAIRMENT [None]
  - INAPPROPRIATE SCHEDULE OF DRUG ADMINISTRATION [None]
